FAERS Safety Report 24751680 (Version 1)
Quarter: 2024Q4

REPORT INFORMATION
  Report Type: Spontaneous
  Country: ES (occurrence: ES)
  Receive Date: 20241219
  Receipt Date: 20241219
  Transmission Date: 20250115
  Serious: Yes (Hospitalization)
  Sender: SANDOZ
  Company Number: None

PATIENT
  Age: 80 Year
  Sex: Female
  Weight: 79.4 kg

DRUGS (3)
  1. CARVEDILOL [Suspect]
     Active Substance: CARVEDILOL
     Indication: Hypertension
     Dosage: 12.5 MG, Q12H (12.5MG CADA 12 HORAS)
     Route: 048
     Dates: start: 20220214, end: 20240831
  2. DOXAZOSIN [Suspect]
     Active Substance: DOXAZOSIN\DOXAZOSIN MESYLATE
     Indication: Hypertension
     Dosage: 8 MG, QD (DOXAZOSINA 8 MG COMPRIMIDO LIBERACI?N MODIFICADA)
     Route: 048
     Dates: start: 202203, end: 20240831
  3. HYDROCHLOROTHIAZIDE\VALSARTAN [Suspect]
     Active Substance: HYDROCHLOROTHIAZIDE\VALSARTAN
     Indication: Hypertension
     Dosage: 1 DF, QD (1 COMPRIMIDO CADA 24 HORAS  0
     Route: 048
     Dates: start: 202203, end: 20240831

REACTIONS (2)
  - Condition aggravated [Recovered/Resolved]
  - Renal failure [Recovering/Resolving]

NARRATIVE: CASE EVENT DATE: 20240831
